FAERS Safety Report 4679471-1 (Version None)
Quarter: 2005Q2

REPORT INFORMATION
  Report Type: 
  Country: None (occurrence: None)
  Receive Date: 20050531
  Receipt Date: 20050513
  Transmission Date: 20051028
  Serious: Yes (Life-Threatening)
  Sender: FDA-Public Use
  Company Number: B0359511A

PATIENT
  Sex: Female

DRUGS (4)
  1. PAXIL [Suspect]
     Indication: BIPOLAR DISORDER
     Dates: start: 19960101
  2. ZOPICLONE [Concomitant]
  3. FLUPENTHIXOL HCL [Concomitant]
  4. CARBAMAZEPINE [Concomitant]

REACTIONS (13)
  - ABDOMINAL PAIN [None]
  - AFFECTIVE DISORDER [None]
  - ANXIETY [None]
  - APATHY [None]
  - BIPOLAR DISORDER [None]
  - COMPLETED SUICIDE [None]
  - DEPRESSION [None]
  - DISEASE RECURRENCE [None]
  - DRUG WITHDRAWAL SYNDROME [None]
  - FEELING ABNORMAL [None]
  - OVERDOSE [None]
  - PSYCHOTIC DISORDER [None]
  - SLEEP DISORDER [None]
